FAERS Safety Report 24048029 (Version 4)
Quarter: 2025Q3

REPORT INFORMATION
  Report Type: Report from Study
  Country: CA (occurrence: CA)
  Receive Date: 20240703
  Receipt Date: 20250728
  Transmission Date: 20251021
  Serious: Yes (Other)
  Sender: SANDOZ
  Company Number: CA-002147023-NVSC2023CA004038

PATIENT
  Sex: Female

DRUGS (5)
  1. HYRIMOZ [Suspect]
     Active Substance: ADALIMUMAB-ADAZ
     Indication: Ankylosing spondylitis
     Dosage: 40 MG Q2 WEEKS; OTHER, STRENGTH: 20 MG
     Route: 058
     Dates: start: 20221213
  2. HYRIMOZ [Suspect]
     Active Substance: ADALIMUMAB-ADAZ
     Dosage: 40MG/0.8 ML
     Route: 058
     Dates: start: 20231124
  3. TRAMADOL [Concomitant]
     Active Substance: TRAMADOL
     Indication: Nausea
     Route: 065
  4. TRAMADOL [Concomitant]
     Active Substance: TRAMADOL
     Indication: Pruritus
  5. TRAMADOL [Concomitant]
     Active Substance: TRAMADOL
     Indication: Somnolence

REACTIONS (8)
  - Abortion spontaneous [Unknown]
  - Psoriatic arthropathy [Unknown]
  - Ankylosing spondylitis [Unknown]
  - Somatic symptom disorder of pregnancy [Unknown]
  - Nausea [Unknown]
  - Abdominal pain upper [Unknown]
  - Product dose omission issue [Unknown]
  - Intentional dose omission [Unknown]
